FAERS Safety Report 25464288 (Version 2)
Quarter: 2025Q4

REPORT INFORMATION
  Report Type: Spontaneous
  Country: EU (occurrence: EU)
  Receive Date: 20250621
  Receipt Date: 20251014
  Transmission Date: 20260117
  Serious: Yes (Other)
  Sender: AUROBINDO
  Company Number: EU-AFSSAPS-SE2025000493

PATIENT
  Age: 76 Year
  Sex: Male

DRUGS (1)
  1. ACETAMINOPHEN [Suspect]
     Active Substance: ACETAMINOPHEN
     Indication: Product used for unknown indication
     Dosage: UNK
     Route: 065
     Dates: start: 202501

REACTIONS (3)
  - Type I hypersensitivity [Recovered/Resolved]
  - Urticaria [Recovered/Resolved]
  - Allergy test negative [Recovered/Resolved]

NARRATIVE: CASE EVENT DATE: 20250101
